FAERS Safety Report 8421796-8 (Version None)
Quarter: 2012Q2

REPORT INFORMATION
  Report Type: 
  Country: None (occurrence: None)
  Receive Date: 20120608
  Receipt Date: 20120529
  Transmission Date: 20120825
  Serious: Yes (Other)
  Sender: FDA-Public Use
  Company Number: FR-ALLERGAN-1207521US

PATIENT
  Age: 63 Year
  Sex: Female

DRUGS (3)
  1. BOTOX [Suspect]
     Indication: PRODUCT USED FOR UNKNOWN INDICATION
     Dosage: UNK
     Dates: start: 20111101, end: 20111101
  2. BOTOX [Suspect]
     Dosage: UNK
     Dates: start: 20110401, end: 20110401
  3. BOTOX [Suspect]
     Dosage: UNK
     Dates: start: 20100101, end: 20100101

REACTIONS (4)
  - DYSPNOEA [None]
  - COUGH [None]
  - WHEEZING [None]
  - BRONCHITIS [None]
